FAERS Safety Report 21897526 (Version 1)
Quarter: 2023Q1

REPORT INFORMATION
  Report Type: Spontaneous
  Country: CN (occurrence: CN)
  Receive Date: 20230123
  Receipt Date: 20230123
  Transmission Date: 20230418
  Serious: Yes (Other)
  Sender: FDA-Public Use
  Company Number: CN-MYLANLABS-2023M1005248

PATIENT
  Age: 66 Year
  Sex: Female

DRUGS (2)
  1. LYRICA [Suspect]
     Active Substance: PREGABALIN
     Indication: Neuralgia
     Dosage: 75 MILLIGRAM, BID
     Route: 048
     Dates: start: 20221212, end: 20221215
  2. DICLOFENAC [Suspect]
     Active Substance: DICLOFENAC
     Indication: Analgesic intervention supportive therapy
     Dosage: 100 MILLIGRAM, BID
     Route: 048
     Dates: start: 20221212, end: 20230113

REACTIONS (1)
  - Liver injury [Recovering/Resolving]

NARRATIVE: CASE EVENT DATE: 20221215
